FAERS Safety Report 8649941 (Version 2)
Quarter: 2014Q1

REPORT INFORMATION
  Report Type: Spontaneous
  Country: US (occurrence: None)
  Receive Date: 20120323
  Receipt Date: 20130305
  Transmission Date: 20141002
  Serious: Yes (Other)
  Sender: FDA-Public Use
  Company Number: 163-21880-11103078

PATIENT
  Age: 80 Year
  Sex: Female

DRUGS (1)
  1. REVLIMID [Suspect]
     Indication: PLASMA CELL MYELOMA
     Dosage: 10 MG, DAILY X 21 DAYS ON, 7 DAYS OFF, PO
     Route: 048
     Dates: start: 20100625

REACTIONS (3)
  - Hypothyroidism [None]
  - Diarrhoea [None]
  - Pruritus [None]
